FAERS Safety Report 5622334-5 (Version None)
Quarter: 2008Q1

REPORT INFORMATION
  Report Type: 
  Country: None (occurrence: None)
  Receive Date: 20080206
  Receipt Date: 20080123
  Transmission Date: 20080703
  Serious: Yes (Death)
  Sender: FDA-Public Use
  Company Number: CERZ-1000044

PATIENT
  Age: 2 Year
  Sex: Male

DRUGS (1)
  1. CEREZYME [Suspect]
     Indication: GAUCHER'S DISEASE
     Dosage: 120 U/KG, MONTH, INTRAVENOUS
     Route: 042
     Dates: start: 20070101, end: 20071101

REACTIONS (2)
  - MULTI-ORGAN FAILURE [None]
  - SEPSIS [None]
